FAERS Safety Report 6035486-2 (Version None)
Quarter: 2009Q1

REPORT INFORMATION
  Report Type: 
  Country: None (occurrence: None)
  Receive Date: 20090108
  Receipt Date: 20081224
  Transmission Date: 20090719
  Serious: Yes (Other)
  Sender: FDA-Public Use
  Company Number: DSJ-2008-13915

PATIENT
  Age: 55 Year
  Sex: Male
  Weight: 68 kg

DRUGS (6)
  1. OLMESARTAN MEDOXOMIL [Suspect]
     Indication: ESSENTIAL HYPERTENSION
     Dosage: 20 MG ( 20MG, 1 IN 1 D), PER ORAL
     Route: 048
     Dates: start: 20061104
  2. ADALAT CC [Suspect]
     Dosage: 40 MG (40 MG, 1 IN 1 D), PER ORAL
     Route: 048
     Dates: start: 20061104, end: 20080909
  3. DIOVAN [Concomitant]
  4. NITREZIC (NITRENDIPINE) (NITRENDIPINE) [Concomitant]
  5. ATENEMEAL (ATENOLOL) (ATENOLOL) [Concomitant]
  6. TENAXIL (INDAPAMIDE) (INAPAMIDE) [Concomitant]

REACTIONS (2)
  - BLOOD CREATININE INCREASED [None]
  - BLOOD UREA INCREASED [None]
